FAERS Safety Report 20104148 (Version 1)
Quarter: 2021Q4

REPORT INFORMATION
  Report Type: Spontaneous
  Country: US (occurrence: US)
  Receive Date: 20211123
  Receipt Date: 20211123
  Transmission Date: 20220303
  Serious: No
  Sender: FDA-Public Use
  Company Number: US-AMNEAL PHARMACEUTICALS-2021-AMRX-01499

PATIENT
  Sex: Male

DRUGS (3)
  1. ISOTRETINOIN [Suspect]
     Active Substance: ISOTRETINOIN
     Indication: Acne
     Dosage: UNK
     Route: 048
  2. BENZOYL PEROXIDE [Concomitant]
     Active Substance: BENZOYL PEROXIDE
     Indication: Acne
     Dosage: UNK
     Route: 061
  3. TRETINOIN [Concomitant]
     Active Substance: TRETINOIN
     Indication: Acne
     Dosage: UNK
     Route: 061

REACTIONS (8)
  - Night blindness [Recovered/Resolved]
  - Myalgia [Unknown]
  - Headache [Unknown]
  - Arthralgia [Unknown]
  - Depression [Unknown]
  - Mood altered [Unknown]
  - Vision blurred [Recovered/Resolved]
  - Fatigue [Unknown]
